FAERS Safety Report 20304822 (Version 1)
Quarter: 2022Q1

REPORT INFORMATION
  Report Type: Spontaneous
  Country: IE (occurrence: IE)
  Receive Date: 20220106
  Receipt Date: 20220106
  Transmission Date: 20220424
  Serious: Yes (Other)
  Sender: FDA-Public Use
  Company Number: IE-JNJFOC-20211225647

PATIENT
  Age: 60 Year
  Sex: Male

DRUGS (2)
  1. FLUOXETINE [Suspect]
     Active Substance: FLUOXETINE HYDROCHLORIDE
     Indication: Alcoholic psychosis
     Dosage: 60 MILLIGRAM
     Route: 065
  2. RISPERDAL [Suspect]
     Active Substance: RISPERIDONE
     Indication: Alcoholic psychosis
     Dosage: 4 MILLIGRAM
     Route: 048

REACTIONS (3)
  - Intentional self-injury [Recovered/Resolved]
  - Product use in unapproved indication [Unknown]
  - Off label use [Unknown]
